FAERS Safety Report 23931775 (Version 1)
Quarter: 2024Q2

REPORT INFORMATION
  Report Type: Other
  Country: KZ (occurrence: KZ)
  Receive Date: 20240603
  Receipt Date: 20240603
  Transmission Date: 20240715
  Serious: Yes (Other)
  Sender: FDA-Public Use
  Company Number: KZ-MACLEODS PHARMA-MAC2024047420

PATIENT
  Age: 52 Year
  Sex: Female

DRUGS (4)
  1. PYRAZINAMIDE [Suspect]
     Active Substance: PYRAZINAMIDE
     Indication: Pulmonary tuberculosis
     Dosage: RK-LS-5 NO. 024322
     Dates: start: 20231222, end: 20240326
  2. Levozin [Concomitant]
     Indication: Product used for unknown indication
     Dosage: RK-LS-5 NO. 022142,  IDOL PHARMACEUTICAL FILLING INDUSTRY AND TRADE A. S.; TURKEY
     Route: 065
  3. ETHAMBUTOL HYDROCHLORIDE [Concomitant]
     Active Substance: ETHAMBUTOL HYDROCHLORIDE
     Indication: Product used for unknown indication
     Dosage: RK-LS-5 NO. 020274 KOMBUTOL; CONCEPT PHARMACEUTICALS LIMITED; INDIA
  4. RIFAMPIN [Concomitant]
     Active Substance: RIFAMPIN
     Indication: Product used for unknown indication
     Dosage: RK-LS-5 NO. 018465; BELMEDPREPARATY RUP; BELARUS
     Route: 065

REACTIONS (2)
  - Angioedema [Recovering/Resolving]
  - Urticaria [Recovering/Resolving]
